FAERS Safety Report 16334946 (Version 2)
Quarter: 2020Q4

REPORT INFORMATION
  Report Type: Report from Study
  Country: None (occurrence: US)
  Receive Date: 20190520
  Receipt Date: 20201231
  Transmission Date: 20210113
  Serious: Yes (Death)
  Sender: FDA-Public Use
  Company Number: US-ABBVIE-19K-163-2789982-00

PATIENT
  Sex: Female

DRUGS (12)
  1. VENCLEXTA [Suspect]
     Active Substance: VENETOCLAX
     Indication: DIFFUSE LARGE B-CELL LYMPHOMA
     Route: 048
     Dates: start: 2018, end: 2018
  2. METOPROLOL TARTRATE. [Concomitant]
     Active Substance: METOPROLOL TARTRATE
     Indication: PRODUCT USED FOR UNKNOWN INDICATION
     Route: 048
  3. VENCLEXTA [Suspect]
     Active Substance: VENETOCLAX
     Route: 048
     Dates: start: 2018
  4. CALCIUM 500+D [Concomitant]
     Active Substance: CALCIUM\VITAMIN D
     Indication: PRODUCT USED FOR UNKNOWN INDICATION
     Dosage: 500-400MG UNIT TAB DAILY
     Route: 048
  5. DOCUSATE [Concomitant]
     Active Substance: DOCUSATE
     Indication: PRODUCT USED FOR UNKNOWN INDICATION
     Dosage: EVERY NIGHT AT BEDTIME
     Route: 048
  6. POLYETHYLENE GLYCOL 3350. [Concomitant]
     Active Substance: POLYETHYLENE GLYCOL 3350
     Indication: CONSTIPATION
     Dosage: DISSOLVE 1 CAPFUL OF 8 OUNCES OF LIQUID AND TAKE BY MOUTH DAILY AS NEEDED FOR CONSTIPATION
     Route: 048
  7. VITAMIN D [Concomitant]
     Active Substance: VITAMIN D NOS
     Indication: PRODUCT USED FOR UNKNOWN INDICATION
     Route: 048
  8. VENCLEXTA [Suspect]
     Active Substance: VENETOCLAX
     Indication: DIFFUSE LARGE B-CELL LYMPHOMA
     Route: 048
     Dates: start: 20181113, end: 2018
  9. B COMPLEX WITH FOLIC ACID [Concomitant]
     Indication: PRODUCT USED FOR UNKNOWN INDICATION
     Route: 048
  10. POLYETHYLENE GLYCOL;PROPYLENE GLYCOL [Concomitant]
     Indication: DRY EYE
     Dosage: 0.4-0.3%  INSTILL 1 DROP INTO EYE DAILY AS NEEDED
     Route: 047
  11. FLUTICASONE. [Concomitant]
     Active Substance: FLUTICASONE
     Indication: UNEVALUABLE EVENT
     Dosage: ADMINISTER 2 SPRAYS INTO EACH NOSTRIL DAILY
     Route: 045
  12. ACETAMINOPHEN. [Concomitant]
     Active Substance: ACETAMINOPHEN
     Indication: PAIN
     Route: 048

REACTIONS (2)
  - Death [Fatal]
  - Intentional product use issue [Unknown]
